FAERS Safety Report 11134357 (Version 3)
Quarter: 2015Q2

REPORT INFORMATION
  Report Type: Report from Study
  Country: TR (occurrence: TR)
  Receive Date: 20150525
  Receipt Date: 20150626
  Transmission Date: 20150821
  Serious: Yes (Hospitalization)
  Sender: FDA-Public Use
  Company Number: TR-ABBVIE-15K-161-1395419-00

PATIENT
  Age: 14 Year
  Sex: Male
  Weight: 60 kg

DRUGS (3)
  1. SALAZOPYRIN [Concomitant]
     Active Substance: SULFASALAZINE
     Indication: ANKYLOSING SPONDYLITIS
     Route: 048
     Dates: start: 201208
  2. IMURAN [Concomitant]
     Active Substance: AZATHIOPRINE
     Indication: ANKYLOSING SPONDYLITIS
     Route: 048
     Dates: start: 20150514
  3. HUMIRA [Suspect]
     Active Substance: ADALIMUMAB
     Indication: JUVENILE IDIOPATHIC ARTHRITIS
     Route: 058
     Dates: start: 20140605, end: 20150521

REACTIONS (1)
  - Uveitis [Recovering/Resolving]

NARRATIVE: CASE EVENT DATE: 201504
